FAERS Safety Report 7901888-X (Version None)
Quarter: 2011Q4

REPORT INFORMATION
  Report Type: 
  Country: None (occurrence: None)
  Receive Date: 20111108
  Receipt Date: 20111103
  Transmission Date: 20120403
  Serious: Yes (Hospitalization, Other)
  Sender: FDA-Public Use
  Company Number: US-MERCK-1108USA00320

PATIENT
  Age: 68 Year
  Sex: Female

DRUGS (7)
  1. FOSAMAX [Suspect]
     Indication: OSTEOPENIA
     Route: 048
     Dates: start: 20030501, end: 20091001
  2. KLOR-CON [Concomitant]
     Indication: BLOOD POTASSIUM
     Route: 065
     Dates: start: 20030301
  3. COUMADIN [Concomitant]
     Indication: ANTICOAGULANT THERAPY
     Route: 065
     Dates: start: 20030301
  4. FOSAMAX [Suspect]
     Indication: OSTEOPOROSIS
     Route: 048
     Dates: start: 20030501, end: 20091001
  5. AMITRIPTYLINE HYDROCHLORIDE [Concomitant]
     Indication: DEPRESSION
     Route: 065
     Dates: start: 20030301
  6. AMITRIPTYLINE HYDROCHLORIDE [Concomitant]
     Indication: ANXIETY
     Route: 065
     Dates: start: 20030301
  7. LOPERAMIDE HYDROCHLORIDE [Concomitant]
     Indication: FUNCTIONAL GASTROINTESTINAL DISORDER
     Route: 065
     Dates: start: 20030301

REACTIONS (11)
  - DENTAL CARIES [None]
  - BLOOD CHOLESTEROL INCREASED [None]
  - FEEDING TUBE COMPLICATION [None]
  - THYROID NEOPLASM [None]
  - HYPERTENSION [None]
  - ANXIETY [None]
  - OSTEONECROSIS OF JAW [None]
  - CHEST PAIN [None]
  - ANGIOPATHY [None]
  - IMPAIRED HEALING [None]
  - DEPRESSION [None]
